FAERS Safety Report 19063403 (Version 1)
Quarter: 2021Q1

REPORT INFORMATION
  Report Type: Spontaneous
  Country: IN (occurrence: IN)
  Receive Date: 20210326
  Receipt Date: 20210326
  Transmission Date: 20210420
  Serious: Yes (Death, Life-Threatening, Hospitalization, Other)
  Sender: FDA-Public Use
  Company Number: IN-AMGEN-INDSP2021044558

PATIENT
  Age: 14 Year
  Sex: Male

DRUGS (6)
  1. THIOTEPA. [Concomitant]
     Active Substance: THIOTEPA
     Dosage: 10 MILLIGRAM/KILOGRAM
  2. CYCLOPHOSPHAMIDE. [Concomitant]
     Active Substance: CYCLOPHOSPHAMIDE
     Dosage: 50 MILLIGRAM/KILOGRAM
  3. CYCLOPHOSPHAMIDE. [Concomitant]
     Active Substance: CYCLOPHOSPHAMIDE
     Dosage: 14.5 MILLIGRAM/KILOGRAM, QD,  2 DAYS
  4. RITUXIMAB. [Concomitant]
     Active Substance: RITUXIMAB
  5. FLUDARABINE [FLUDARABINE PHOSPHATE] [Concomitant]
     Active Substance: FLUDARABINE PHOSPHATE
     Dosage: 40 MILLIGRAM/SQ. METER, QD, 4 DAYS
  6. BLINATUMOMAB [Suspect]
     Active Substance: BLINATUMOMAB
     Indication: ACUTE LYMPHOCYTIC LEUKAEMIA
     Dosage: UNK
     Route: 065

REACTIONS (13)
  - Multisystem inflammatory syndrome in children [Unknown]
  - Pneumonia viral [Fatal]
  - Coronavirus infection [Unknown]
  - Coagulopathy [Unknown]
  - Dry gangrene [Unknown]
  - Pancytopenia [Unknown]
  - BK virus infection [Unknown]
  - Acute respiratory distress syndrome [Unknown]
  - Cytomegalovirus infection reactivation [Unknown]
  - Parainfluenzae virus infection [Unknown]
  - Platelet count decreased [Unknown]
  - Cystitis haemorrhagic [Unknown]
  - Respiratory distress [Not Recovered/Not Resolved]
